FAERS Safety Report 5818773-X (Version None)
Quarter: 2008Q3

REPORT INFORMATION
  Report Type: 
  Country: None (occurrence: None)
  Receive Date: 20080721
  Receipt Date: 20080721
  Transmission Date: 20090109
  Serious: Yes (Hospitalization)
  Sender: FDA-Public Use
  Company Number: None

PATIENT
  Age: 41 Year
  Sex: Female
  Weight: 70.3075 kg

DRUGS (6)
  1. MORPHINE SULFATE ER  60 MGS ETHEX [Suspect]
     Indication: FIBROMYALGIA
     Dosage: 60 MGS 2 DAILY PO
     Route: 048
     Dates: start: 20060603, end: 20080606
  2. MORPHINE SULFATE ER  60 MGS ETHEX [Suspect]
     Indication: INTERVERTEBRAL DISC DEGENERATION
     Dosage: 60 MGS 2 DAILY PO
     Route: 048
     Dates: start: 20060603, end: 20080606
  3. MORPHINE SULFATE ER  60 MGS ETHEX [Suspect]
     Indication: SPINAL COLUMN STENOSIS
     Dosage: 60 MGS 2 DAILY PO
     Route: 048
     Dates: start: 20060603, end: 20080606
  4. MORPHINE SULFATE ER 30 MGS ETHEX [Suspect]
     Indication: FIBROMYALGIA
     Dosage: 30 MGS 2 DAILY PO
     Route: 048
     Dates: start: 20060615, end: 20070615
  5. MORPHINE SULFATE ER 30 MGS ETHEX [Suspect]
     Indication: INTERVERTEBRAL DISC DEGENERATION
     Dosage: 30 MGS 2 DAILY PO
     Route: 048
     Dates: start: 20060615, end: 20070615
  6. MORPHINE SULFATE ER 30 MGS ETHEX [Suspect]
     Indication: SPINAL COLUMN STENOSIS
     Dosage: 30 MGS 2 DAILY PO
     Route: 048
     Dates: start: 20060615, end: 20070615

REACTIONS (2)
  - INCORRECT DOSE ADMINISTERED [None]
  - STOMACH DISCOMFORT [None]
